FAERS Safety Report 8276517-9 (Version None)
Quarter: 2012Q2

REPORT INFORMATION
  Report Type: 
  Country: None (occurrence: None)
  Receive Date: 20120412
  Receipt Date: 20120119
  Transmission Date: 20120825
  Serious: No
  Sender: FDA-Public Use
  Company Number: US-GLAXOSMITHKLINE-A0962262A

PATIENT
  Sex: Male

DRUGS (2)
  1. FLOMAX [Concomitant]
  2. JALYN [Suspect]
     Indication: PRODUCT USED FOR UNKNOWN INDICATION

REACTIONS (1)
  - RETROGRADE EJACULATION [None]
